FAERS Safety Report 9113833 (Version 1)
Quarter: 2013Q1

REPORT INFORMATION
  Report Type: Spontaneous
  Country: US (occurrence: US)
  Receive Date: 20130208
  Receipt Date: 20130208
  Transmission Date: 20140127
  Serious: Yes (Other)
  Sender: FDA-Public Use
  Company Number: US-TEVA-384569USA

PATIENT
  Sex: Female

DRUGS (4)
  1. NUVIGIL [Suspect]
     Indication: SLEEP APNOEA SYNDROME
     Dates: start: 2012, end: 2012
  2. LORATADINE [Concomitant]
     Dosage: 10 MILLIGRAM DAILY;
     Dates: start: 2009
  3. PRENATAL VITAMINS [Concomitant]
     Indication: PREGNANCY
     Dates: start: 2012
  4. ZOLOFT [Concomitant]
     Dosage: 50 MILLIGRAM DAILY;
     Dates: start: 2010, end: 201211

REACTIONS (2)
  - Gestational diabetes [Not Recovered/Not Resolved]
  - Pregnancy [Not Recovered/Not Resolved]
